FAERS Safety Report 5302717-3 (Version None)
Quarter: 2007Q2

REPORT INFORMATION
  Report Type: 
  Country: None (occurrence: None)
  Receive Date: 20070419
  Receipt Date: 20070410
  Transmission Date: 20071010
  Serious: Yes (Hospitalization)
  Sender: FDA-Public Use
  Company Number: FR-PFIZER INC-2007024873

PATIENT
  Sex: Female
  Weight: 58 kg

DRUGS (4)
  1. AROMASIN [Suspect]
     Indication: BREAST CANCER
  2. TAXOL [Suspect]
     Indication: BREAST CANCER
     Dosage: FREQ:EVERY 3 WEEKS
  3. TAXOTERE [Concomitant]
     Indication: BREAST CANCER
     Dosage: DAILY DOSE:125MG
     Route: 042
     Dates: start: 20070222, end: 20070222
  4. ZOMETA [Concomitant]
     Indication: BREAST CANCER
     Dosage: DAILY DOSE:4MG
     Route: 042
     Dates: start: 20070222, end: 20070222

REACTIONS (3)
  - APLASIA [None]
  - CHILLS [None]
  - DIARRHOEA [None]
